FAERS Safety Report 9507683 (Version 1)
Quarter: 2013Q1

REPORT INFORMATION
  Report Type: Spontaneous
  Country: US (occurrence: None)
  Receive Date: 20130305
  Receipt Date: 20130305
  Transmission Date: 20140127
  Serious: No
  Sender: FDA-Public Use
  Company Number: 163-21880-1212009

PATIENT
  Age: 70 Year
  Sex: Male

DRUGS (4)
  1. REVLIMID (LENALIDOMIDE) (25 MILLIGRAM, CAPSULES) [Suspect]
     Indication: PLASMA CELL MYELOMA
     Dosage: 25MG, 14 IN 14D, PO
     Route: 048
     Dates: start: 20121013
  2. LIPITOR (ATORVASTATIN) [Concomitant]
  3. ATENOLOL (ATENOLOL) [Concomitant]
  4. VITAMINS [Concomitant]

REACTIONS (1)
  - Skin discolouration [None]
